FAERS Safety Report 5131798-5 (Version None)
Quarter: 2006Q4

REPORT INFORMATION
  Report Type: 
  Country: None (occurrence: None)
  Receive Date: 20061016
  Receipt Date: 20061002
  Transmission Date: 20070319
  Serious: Yes (Hospitalization, Other)
  Sender: FDA-Public Use
  Company Number: 2006119980

PATIENT
  Age: 77 Year
  Sex: Male

DRUGS (1)
  1. SILDENAFIL CITRATE [Suspect]
     Dosage: (25 MG, ONE DOSE)

REACTIONS (1)
  - COMPUTERISED TOMOGRAM ABNORMAL [None]
